FAERS Safety Report 10700831 (Version 1)
Quarter: 2015Q1

REPORT INFORMATION
  Report Type: Spontaneous
  Country: US (occurrence: None)
  Receive Date: 20150108
  Receipt Date: 20150108
  Transmission Date: 20150721
  Serious: No
  Sender: FDA-Public Use
  Company Number: None

PATIENT
  Age: 63 Year
  Sex: Female
  Weight: 90.72 kg

DRUGS (3)
  1. MULTI [Concomitant]
  2. CLINDAMYCIN [Suspect]
     Active Substance: CLINDAMYCIN\CLINDAMYCIN PHOSPHATE
     Indication: TOOTH INFECTION
     Dosage: 150 MG CAPSULES, 1 CAPSULE, EVERY 6 HRS, MOUTH
     Route: 048
     Dates: start: 20141217, end: 20141219
  3. ERFA/THYROID [Concomitant]

REACTIONS (6)
  - Mass [None]
  - Headache [None]
  - Abdominal pain lower [None]
  - Tooth disorder [None]
  - Fungal infection [None]
  - Flatulence [None]

NARRATIVE: CASE EVENT DATE: 20141218
